APPROVED DRUG PRODUCT: FOTIVDA
Active Ingredient: TIVOZANIB HYDROCHLORIDE
Strength: EQ 1.34MG BASE
Dosage Form/Route: CAPSULE;ORAL
Application: N212904 | Product #002
Applicant: AVEO PHARMACEUTICALS INC
Approved: Mar 10, 2021 | RLD: Yes | RS: Yes | Type: RX

PATENTS:
Patent 11504365 | Expires: Nov 5, 2039
Patent 7166722 | Expires: Nov 16, 2028

EXCLUSIVITY:
Code: NCE | Date: Mar 10, 2026